FAERS Safety Report 6157963-6 (Version None)
Quarter: 2009Q2

REPORT INFORMATION
  Report Type: 
  Country: None (occurrence: None)
  Receive Date: 20090417
  Receipt Date: 20090408
  Transmission Date: 20091009
  Serious: Yes (Death)
  Sender: FDA-Public Use
  Company Number: TR-MEDIMMUNE-MEDI-0008245

PATIENT
  Age: 8 Month
  Sex: Female
  Weight: 3.5 kg

DRUGS (5)
  1. SYNAGIS [Suspect]
     Indication: BRONCHOPULMONARY DYSPLASIA
     Route: 030
     Dates: start: 20081007, end: 20090221
  2. SYNAGIS [Suspect]
     Route: 030
     Dates: start: 20081007
  3. SYNAGIS [Suspect]
     Route: 030
     Dates: start: 20081106
  4. SYNAGIS [Suspect]
     Route: 030
     Dates: start: 20081208
  5. SYNAGIS [Suspect]
     Route: 030
     Dates: start: 20090121

REACTIONS (2)
  - ANOREXIA [None]
  - CYANOSIS [None]
